FAERS Safety Report 5201839-5 (Version None)
Quarter: 2006Q4

REPORT INFORMATION
  Report Type: 
  Country: None (occurrence: None)
  Receive Date: 20061003
  Receipt Date: 20060601
  Transmission Date: 20070319
  Serious: No
  Sender: FDA-Public Use
  Company Number: 2006-0009693

PATIENT
  Sex: Female

DRUGS (2)
  1. TRUVADA [Suspect]
     Dates: start: 20060501
  2. EFAVIRENZ [Concomitant]

REACTIONS (4)
  - HAEMATURIA [None]
  - HAEMOLYSIS [None]
  - PROTEINURIA [None]
  - RENAL IMPAIRMENT [None]
